FAERS Safety Report 13137331 (Version 1)
Quarter: 2017Q1

REPORT INFORMATION
  Report Type: Report from Study
  Country: US (occurrence: US)
  Receive Date: 20170123
  Receipt Date: 20170123
  Transmission Date: 20170428
  Serious: Yes (Hospitalization, Other)
  Sender: FDA-Public Use
  Company Number: US-RAPTOR PHARMACEUTICALS, INC.-RAP-001009-2017

PATIENT
  Age: 25 Year
  Sex: Female
  Weight: 53.97 kg

DRUGS (3)
  1. PROCYSBI DELAYED-RELEASE [Suspect]
     Active Substance: CYSTEAMINE BITARTRATE
     Indication: CYSTINOSIS
     Dosage: 450 MG, BID
     Route: 048
     Dates: start: 20140403
  2. SYNTHROID [Concomitant]
     Active Substance: LEVOTHYROXINE SODIUM
     Indication: PRODUCT USED FOR UNKNOWN INDICATION
     Dosage: 75 ?G, DAILY
     Route: 065
  3. CYSTEAMINE [Concomitant]
     Active Substance: CYSTEAMINE
     Indication: PRODUCT USED FOR UNKNOWN INDICATION
     Dosage: UNK
     Route: 065

REACTIONS (5)
  - Ascites [Recovering/Resolving]
  - Fluid overload [Recovering/Resolving]
  - Therapy change [Recovering/Resolving]
  - Product difficult to swallow [Recovering/Resolving]
  - Hypotension [Recovering/Resolving]

NARRATIVE: CASE EVENT DATE: 20140403
